FAERS Safety Report 13010558 (Version 4)
Quarter: 2017Q1

REPORT INFORMATION
  Report Type: Spontaneous
  Country: US (occurrence: US)
  Receive Date: 20161208
  Receipt Date: 20170228
  Transmission Date: 20170428
  Serious: No
  Sender: FDA-Public Use
  Company Number: US-PFIZER INC-2016564718

PATIENT
  Age: 3 Year
  Sex: Male
  Weight: 19 kg

DRUGS (4)
  1. GENOTROPIN [Suspect]
     Active Substance: SOMATROPIN
     Dosage: 0.6 MG, 1X/DAY
     Route: 058
  2. GENOTROPIN [Suspect]
     Active Substance: SOMATROPIN
     Indication: PRADER-WILLI SYNDROME
     Dosage: 0.5 MG, 1X/DAY
     Route: 058
     Dates: start: 201107
  3. CORTEF [Concomitant]
     Active Substance: HYDROCORTISONE
     Dosage: 5 MG, 3X/DAY, 1 TABLET, PO, EVERY 8 HOURS
     Route: 048
  4. GENOTROPIN [Suspect]
     Active Substance: SOMATROPIN
     Dosage: 0.8 MG, 1X/DAY
     Route: 058
     Dates: start: 2011

REACTIONS (5)
  - Abnormal behaviour [Unknown]
  - Dysphemia [Unknown]
  - Hypotonia [Unknown]
  - Sleep apnoea syndrome [Recovering/Resolving]
  - Drug dose omission [Unknown]
